FAERS Safety Report 21747737 (Version 3)
Quarter: 2022Q4

REPORT INFORMATION
  Report Type: Report from Study
  Country: CN (occurrence: CN)
  Receive Date: 20221219
  Receipt Date: 20221229
  Transmission Date: 20230113
  Serious: Yes (Hospitalization)
  Sender: FDA-Public Use
  Company Number: US-PHARMACOVIGILANCE-CN-KAD-22-00629

PATIENT
  Age: 29 Year
  Sex: Male
  Weight: 51 kg

DRUGS (10)
  1. BELUMOSUDIL MESYLATE [Suspect]
     Active Substance: BELUMOSUDIL MESYLATE
     Indication: Chronic graft versus host disease
     Dosage: 200 MG, QD
     Route: 048
     Dates: start: 20211112, end: 20220619
  2. METHYLPREDNISOLONE [Concomitant]
     Active Substance: METHYLPREDNISOLONE
     Indication: Chronic graft versus host disease
     Dosage: 8 MG, BID
     Route: 048
     Dates: start: 202010
  3. PROGRAF [Concomitant]
     Active Substance: TACROLIMUS
     Indication: Chronic graft versus host disease
     Dosage: 1 DF, BID
     Route: 048
     Dates: start: 202010
  4. URSODIOL [Concomitant]
     Active Substance: URSODIOL
     Indication: Chronic graft versus host disease
     Dosage: 1 DF, BID
     Route: 048
     Dates: start: 202010
  5. BICYCLOL [Concomitant]
     Active Substance: BICYCLOL
     Indication: Chronic graft versus host disease
     Dosage: 2 DF, BID
     Route: 048
     Dates: start: 202010
  6. BICYCLOL [Concomitant]
     Active Substance: BICYCLOL
     Dosage: 2 DF, TID
     Route: 048
     Dates: start: 202010, end: 20220625
  7. ROCALTROL [Concomitant]
     Active Substance: CALCITRIOL
     Indication: Osteoporosis prophylaxis
     Dosage: 6 DF, PRN
     Route: 048
     Dates: start: 202010
  8. SODIUM HYALURONATE [Concomitant]
     Active Substance: HYALURONATE SODIUM
     Indication: Product used for unknown indication
     Dosage: UNK, PRN
     Route: 047
     Dates: start: 202010
  9. COMPOUND CHLORHEXIDINE GARGLE [Concomitant]
     Indication: Chronic graft versus host disease
     Dosage: UNK, PRN
     Route: 048
     Dates: start: 202010
  10. CALCIUM CARBONATE\CHOLECALCIFEROL [Concomitant]
     Active Substance: CALCIUM CARBONATE\CHOLECALCIFEROL
     Indication: Product used for unknown indication
     Dosage: 1 DF, PRN
     Route: 048
     Dates: start: 202010

REACTIONS (1)
  - Skin bacterial infection [Recovered/Resolved]

NARRATIVE: CASE EVENT DATE: 20220623
